FAERS Safety Report 4708232-X (Version None)
Quarter: 2005Q3

REPORT INFORMATION
  Report Type: 
  Country: None (occurrence: None)
  Receive Date: 20050705
  Receipt Date: 20050705
  Transmission Date: 20060218
  Serious: No
  Sender: FDA-Public Use
  Company Number: None

PATIENT
  Age: 63 Year
  Sex: Male
  Weight: 107.0489 kg

DRUGS (2)
  1. ATENOLOL [Suspect]
     Indication: CORONARY ARTERY DISEASE
     Dosage: 25 MG DAILY
     Dates: start: 20040401, end: 20050401
  2. ATENOLOL [Suspect]
     Indication: HYPERTENSION
     Dosage: 25 MG DAILY
     Dates: start: 20040401, end: 20050401

REACTIONS (1)
  - FATIGUE [None]
